FAERS Safety Report 15937647 (Version 1)
Quarter: 2019Q1

REPORT INFORMATION
  Report Type: Spontaneous
  Country: FR (occurrence: FR)
  Receive Date: 20190208
  Receipt Date: 20190208
  Transmission Date: 20190417
  Serious: Yes (Hospitalization)
  Sender: FDA-Public Use
  Company Number: FR-JNJFOC-20190137567

PATIENT
  Age: 50 Year
  Sex: Female

DRUGS (2)
  1. CAFFEINE W/PARACETAMOL/PROPOXYPHENE HCL [Concomitant]
     Indication: HEADACHE
     Route: 065
  2. ALMOGRAN [Suspect]
     Active Substance: ALMOTRIPTAN MALATE
     Indication: HEADACHE
     Route: 048
     Dates: start: 2007, end: 20090323

REACTIONS (1)
  - Intentional product misuse [Recovering/Resolving]

NARRATIVE: CASE EVENT DATE: 20090323
